FAERS Safety Report 18691887 (Version 1)
Quarter: 2021Q1

REPORT INFORMATION
  Report Type: Spontaneous
  Country: CH (occurrence: CH)
  Receive Date: 20210102
  Receipt Date: 20210102
  Transmission Date: 20210419
  Serious: Yes (Hospitalization, Other)
  Sender: FDA-Public Use
  Company Number: CH-LEADINGPHARMA-CH-2020LEALIT00186

PATIENT
  Age: 50 Year
  Sex: Male

DRUGS (2)
  1. HYDROXYUREA CAPSULES USP [Suspect]
     Active Substance: HYDROXYUREA
     Indication: ESSENTIAL THROMBOCYTHAEMIA
     Dosage: UP TO 2.5 G/DAY
     Route: 065
  2. RIVAROXABAN [Concomitant]
     Active Substance: RIVAROXABAN
     Indication: DEEP VEIN THROMBOSIS
     Route: 065

REACTIONS (2)
  - Neutropenia [Recovered/Resolved]
  - Accidental overdose [Unknown]
